FAERS Safety Report 7562273-6 (Version None)
Quarter: 2011Q2

REPORT INFORMATION
  Report Type: 
  Country: None (occurrence: None)
  Receive Date: 20110614
  Receipt Date: 20110608
  Transmission Date: 20111010
  Serious: Yes (Hospitalization)
  Sender: FDA-Public Use
  Company Number: ACO_21286_2011

PATIENT
  Age: 47 Year
  Sex: Female
  Weight: 80.7 kg

DRUGS (8)
  1. LYRICA [Concomitant]
  2. MACROBID [Concomitant]
  3. MIRALAX [Concomitant]
  4. AMPYRA [Suspect]
     Indication: GAIT DISTURBANCE
     Dosage: 10 MG, BID, ORAL
     Route: 048
     Dates: start: 20100526
  5. TOPAMAX [Concomitant]
  6. LEVAQUIN [Concomitant]
  7. SUDAFED 12 HOUR [Concomitant]
  8. FLONASE [Concomitant]

REACTIONS (9)
  - FUNGAL INFECTION [None]
  - INSOMNIA [None]
  - SINUSITIS [None]
  - FAECAL INCONTINENCE [None]
  - CONFUSIONAL STATE [None]
  - URINARY TRACT INFECTION [None]
  - FATIGUE [None]
  - MOOD SWINGS [None]
  - CONSTIPATION [None]
